FAERS Safety Report 20001266 (Version 1)
Quarter: 2021Q4

REPORT INFORMATION
  Report Type: Spontaneous
  Country: US (occurrence: US)
  Receive Date: 20211027
  Receipt Date: 20211027
  Transmission Date: 20220304
  Serious: Yes (Disabling)
  Sender: FDA-Public Use
  Company Number: None

PATIENT
  Age: 19 Year
  Sex: Female
  Weight: 54.4 kg

DRUGS (2)
  1. NOREPINEPHRINE [Suspect]
     Active Substance: NOREPINEPHRINE
     Indication: Cardiogenic shock
     Dosage: ?          OTHER FREQUENCY:CONTINUOUS;
     Route: 041
     Dates: start: 20211026
  2. EPINEPHRINE [Suspect]
     Active Substance: EPINEPHRINE
     Indication: Cardiogenic shock
     Dosage: ?          OTHER FREQUENCY:CONTINUOUS;
     Route: 041
     Dates: start: 20211026

REACTIONS (3)
  - Peripheral swelling [None]
  - Peripheral ischaemia [None]
  - Livedo reticularis [None]

NARRATIVE: CASE EVENT DATE: 20211026
